FAERS Safety Report 22385664 (Version 1)
Quarter: 2023Q2

REPORT INFORMATION
  Report Type: Spontaneous
  Country: US (occurrence: US)
  Receive Date: 20230530
  Receipt Date: 20230530
  Transmission Date: 20230722
  Serious: No
  Sender: FDA-Public Use
  Company Number: US-PFIZER INC-PV202300093529

PATIENT
  Age: 47 Year
  Sex: Female

DRUGS (1)
  1. EUCRISA [Suspect]
     Active Substance: CRISABOROLE
     Indication: Dermatitis atopic
     Dosage: UNK UNK, 2X/DAY

REACTIONS (3)
  - Rash [Unknown]
  - Swelling [Unknown]
  - Pruritus [Unknown]
